FAERS Safety Report 13111025 (Version 1)
Quarter: 2017Q1

REPORT INFORMATION
  Report Type: Report from Study
  Country: IN (occurrence: IN)
  Receive Date: 20170112
  Receipt Date: 20170112
  Transmission Date: 20170428
  Serious: Yes (Other)
  Sender: FDA-Public Use
  Company Number: IN-PFIZER INC-2017009651

PATIENT

DRUGS (4)
  1. CYTARABINE. [Suspect]
     Active Substance: CYTARABINE
     Indication: LYMPHOMA
     Dosage: 2000 MG/M2, (D-6, D-5 )
  2. CYCLOPHOSPHAMIDE. [Suspect]
     Active Substance: CYCLOPHOSPHAMIDE
     Indication: LYMPHOMA
     Dosage: 1800 MG/M2, (D-4 TO D-2)
  3. ETOPOSIDE. [Suspect]
     Active Substance: ETOPOSIDE
     Indication: LYMPHOMA
     Dosage: 1000 MG/M2, (D-7)
  4. LOMUSTINE. [Suspect]
     Active Substance: LOMUSTINE
     Indication: LYMPHOMA
     Dosage: 200 MG/M2, (D-7)

REACTIONS (1)
  - Pulmonary toxicity [Unknown]
